APPROVED DRUG PRODUCT: NOURESS
Active Ingredient: CYSTEINE HYDROCHLORIDE
Strength: 500MG/10ML (50MG/ML)
Dosage Form/Route: SOLUTION;INTRAVENOUS
Application: N212535 | Product #001
Applicant: BAXTER HEALTHCARE CORP
Approved: Dec 13, 2019 | RLD: Yes | RS: No | Type: DISCN

PATENTS:
Patent 10543186 | Expires: Mar 15, 2039
Patent 10478453 | Expires: Jan 15, 2039
Patent 10583155 | Expires: Jan 15, 2039
Patent 11510942 | Expires: Jan 15, 2039
Patent 11826383 | Expires: Jan 15, 2039
Patent 10905714 | Expires: Jan 15, 2039
Patent 11045438 | Expires: Mar 15, 2039
Patent 11642370 | Expires: Jan 15, 2039
Patent 10493051 | Expires: Mar 15, 2039
Patent 10918662 | Expires: Jan 15, 2039
Patent 10702490 | Expires: Mar 15, 2039
Patent 11648262 | Expires: Jan 15, 2039
Patent 11510941 | Expires: Mar 2, 2039
Patent 11679125 | Expires: Jan 15, 2039
Patent 10653719 | Expires: Jan 15, 2039
Patent 10912795 | Expires: Jan 15, 2039
Patent 10933089 | Expires: Jan 15, 2039
Patent 10905713 | Expires: Jan 15, 2039
Patent 11684636 | Expires: Jan 15, 2039